FAERS Safety Report 4809501-5 (Version None)
Quarter: 2005Q4

REPORT INFORMATION
  Report Type: 
  Country: None (occurrence: None)
  Receive Date: 20051021
  Receipt Date: 20050919
  Transmission Date: 20060501
  Serious: Yes (Other)
  Sender: FDA-Public Use
  Company Number: US_0505117359

PATIENT
  Age: 41 Year
  Sex: Male

DRUGS (4)
  1. ZYPREXA [Suspect]
     Indication: SCHIZOPHRENIA
     Dosage: 10 MG/4 DAY
     Dates: start: 19970605, end: 20010430
  2. HALDOL [Concomitant]
  3. RISPERDAL [Concomitant]
  4. PREDNISONE [Concomitant]

REACTIONS (7)
  - ALANINE AMINOTRANSFERASE INCREASED [None]
  - ASPARTATE AMINOTRANSFERASE INCREASED [None]
  - BLOOD ALBUMIN INCREASED [None]
  - BLOOD UREA DECREASED [None]
  - BLOOD UREA NITROGEN/CREATININE RATIO DECREASED [None]
  - DERMAL CYST [None]
  - DIABETES MELLITUS [None]
